FAERS Safety Report 8610393-7 (Version None)
Quarter: 2012Q3

REPORT INFORMATION
  Report Type: 
  Country: None (occurrence: None)
  Receive Date: 20120822
  Receipt Date: 20120820
  Transmission Date: 20120928
  Serious: Yes (Hospitalization)
  Sender: FDA-Public Use
  Company Number: PHHO2012DE012136

PATIENT
  Sex: Male
  Weight: 15.2 kg

DRUGS (1)
  1. ILARIS [Suspect]
     Indication: JUVENILE ARTHRITIS
     Dosage: 60.3 MG, UNK
     Route: 058
     Dates: start: 20120514

REACTIONS (1)
  - SEPSIS [None]
